FAERS Safety Report 12077588 (Version 1)
Quarter: 2016Q1

REPORT INFORMATION
  Report Type: Report from Study
  Country: GB (occurrence: GB)
  Receive Date: 20160215
  Receipt Date: 20160215
  Transmission Date: 20160526
  Serious: Yes (Other)
  Sender: FDA-Public Use
  Company Number: GB-ABBVIE-16K-167-1558294-00

PATIENT
  Age: 24 Year
  Sex: Male

DRUGS (1)
  1. HUMIRA [Suspect]
     Active Substance: ADALIMUMAB
     Indication: PRODUCT USED FOR UNKNOWN INDICATION
     Route: 058
     Dates: start: 20150317, end: 20160122

REACTIONS (8)
  - Crying [Unknown]
  - Depression [Unknown]
  - Abnormal behaviour [Unknown]
  - Suicidal ideation [Unknown]
  - Aggression [Unknown]
  - Anger [Unknown]
  - Depressed mood [Unknown]
  - Anxiety [Unknown]

NARRATIVE: CASE EVENT DATE: 201512
